FAERS Safety Report 4825253-7 (Version None)
Quarter: 2005Q4

REPORT INFORMATION
  Report Type: 
  Country: None (occurrence: None)
  Receive Date: 20051109
  Receipt Date: 20051028
  Transmission Date: 20060501
  Serious: Yes (Hospitalization, Other)
  Sender: FDA-Public Use
  Company Number: 2005133717

PATIENT
  Age: 60 Year
  Sex: Male

DRUGS (8)
  1. LIPITOR [Suspect]
     Indication: DYSLIPIDAEMIA
     Dosage: 10 MG (10 MG, 1 IN 1 D), ORAL
     Route: 048
     Dates: start: 19980701
  2. PRAVASTATIN [Suspect]
     Indication: DYSLIPIDAEMIA
     Dosage: ORAL
     Route: 048
  3. SIMVASTATIN [Suspect]
     Indication: DYSLIPIDAEMIA
     Dates: start: 20050801, end: 20050101
  4. SPLENDIL (FELODIPINE) [Concomitant]
  5. ASPIRIN [Concomitant]
  6. ENALAPRIL MALEATE [Concomitant]
  7. PLAVIX [Concomitant]
  8. MONOCORDIL (ISOSORBIDE MONONITRATE) [Concomitant]

REACTIONS (8)
  - BLOOD CHOLESTEROL INCREASED [None]
  - CORONARY ARTERY OCCLUSION [None]
  - DIABETES MELLITUS [None]
  - DRUG INEFFECTIVE [None]
  - MYOCARDIAL INFARCTION [None]
  - PAIN IN EXTREMITY [None]
  - SHOULDER PAIN [None]
  - VENOUS OCCLUSION [None]
